FAERS Safety Report 20190409 (Version 2)
Quarter: 2022Q1

REPORT INFORMATION
  Report Type: Spontaneous
  Country: JP (occurrence: JP)
  Receive Date: 20211215
  Receipt Date: 20220111
  Transmission Date: 20220423
  Serious: No
  Sender: FDA-Public Use
  Company Number: JP-NBI-J202123501BIPI

PATIENT
  Age: 47 Year
  Sex: Female

DRUGS (4)
  1. JARDIANCE [Suspect]
     Active Substance: EMPAGLIFLOZIN
     Indication: Diabetes mellitus
     Route: 048
     Dates: start: 202005, end: 202106
  2. SEMAGLUTIDE(GENETICAL RECOMBINATION) [Concomitant]
     Indication: Diabetes mellitus
     Route: 042
     Dates: start: 202006
  3. SEMAGLUTIDE(GENETICAL RECOMBINATION) [Concomitant]
     Route: 042
  4. SEMAGLUTIDE(GENETICAL RECOMBINATION) [Concomitant]
     Route: 042

REACTIONS (2)
  - Weight decreased [Recovered/Resolved]
  - Urine ketone body present [Recovered/Resolved]

NARRATIVE: CASE EVENT DATE: 20210401
